FAERS Safety Report 7373589-0 (Version None)
Quarter: 2011Q1

REPORT INFORMATION
  Report Type: 
  Country: None (occurrence: None)
  Receive Date: 20110314
  Receipt Date: 20110301
  Transmission Date: 20110831
  Serious: Yes (Hospitalization)
  Sender: FDA-Public Use
  Company Number: FK201100381

PATIENT
  Age: 75 Year
  Sex: Female

DRUGS (1)
  1. METHOTREXATE [Suspect]
     Indication: RHEUMATOID ARTHRITIS
     Dosage: 0.8571 MG (6 MG,1 IN 1 WK)

REACTIONS (9)
  - PANCYTOPENIA [None]
  - PYREXIA [None]
  - TONSILLITIS [None]
  - HEPATOSPLENOMEGALY [None]
  - CONVULSION [None]
  - LYMPHADENOPATHY [None]
  - ALTERED STATE OF CONSCIOUSNESS [None]
  - EPSTEIN-BARR VIRUS ASSOCIATED LYMPHOPROLIFERATIVE DISORDER [None]
  - FATIGUE [None]
